FAERS Safety Report 9915708 (Version 1)
Quarter: 2014Q1

REPORT INFORMATION
  Report Type: Spontaneous
  Country: US (occurrence: None)
  Receive Date: 20140219
  Receipt Date: 20140219
  Transmission Date: 20141002
  Serious: Yes (Other)
  Sender: FDA-Public Use
  Company Number: None

PATIENT
  Age: 66 Year
  Sex: Male
  Weight: 58.97 kg

DRUGS (10)
  1. MARC IBUPROFEN TABLETS [Suspect]
     Indication: PAIN IN JAW
     Dosage: 4 PILL 4X MOUTH
     Route: 048
     Dates: start: 20140130, end: 20140201
  2. MARC IBUPROFEN TABLETS [Suspect]
     Indication: SWELLING FACE
     Dosage: 4 PILL 4X MOUTH
     Route: 048
     Dates: start: 20140130, end: 20140201
  3. CELEBREX [Concomitant]
  4. ASPIRIN [Concomitant]
  5. SELEGINE [Concomitant]
  6. DOXYCYCLINE HYCLATE [Concomitant]
  7. THERAD [Concomitant]
  8. MULTI VITAMIN [Concomitant]
  9. FISH OIL [Concomitant]
  10. CALCIUM [Concomitant]

REACTIONS (4)
  - Abdominal pain upper [None]
  - Nausea [None]
  - Vomiting [None]
  - Faeces discoloured [None]
